FAERS Safety Report 8339515-2 (Version None)
Quarter: 2012Q2

REPORT INFORMATION
  Report Type: 
  Country: None (occurrence: None)
  Receive Date: 20120507
  Receipt Date: 20120428
  Transmission Date: 20120825
  Serious: Yes (Hospitalization)
  Sender: FDA-Public Use
  Company Number: PHHY2012IN037068

PATIENT

DRUGS (1)
  1. ONBREZ [Suspect]
     Dosage: 300 UG, UNK

REACTIONS (2)
  - DYSPNOEA [None]
  - RESPIRATORY TRACT CONGESTION [None]
